FAERS Safety Report 8238840-3 (Version None)
Quarter: 2012Q1

REPORT INFORMATION
  Report Type: 
  Country: None (occurrence: None)
  Receive Date: 20120327
  Receipt Date: 20120310
  Transmission Date: 20120608
  Serious: Yes (Other)
  Sender: FDA-Public Use
  Company Number: PHHY2012BE020601

PATIENT
  Sex: Male

DRUGS (16)
  1. ATENOLOL [Concomitant]
     Indication: HYPERTENSION
     Dosage: UNK
  2. ZANTAC [Concomitant]
     Indication: GASTROOESOPHAGEAL REFLUX DISEASE
     Dosage: UNK
  3. PERINDOPRIL ERBUMINE [Concomitant]
     Dosage: 5 MG, UNK
     Dates: start: 20091201
  4. NSAID'S [Concomitant]
     Dosage: UNK
  5. EFFEXOR [Concomitant]
     Indication: DEPRESSION
     Dosage: 75 MG, UNK
     Dates: start: 20100101, end: 20110501
  6. ZESTRIL [Concomitant]
     Indication: HYPERTENSION
     Dosage: 20 MG, UNK
  7. LERCANIDIPINE [Concomitant]
     Dosage: 10 MG
     Dates: start: 20100101
  8. PERINDOPRIL ERBUMINE [Concomitant]
     Dosage: 10 MG, UNK
  9. NOBITEN [Concomitant]
     Dosage: 2.5 MG, UNK
     Dates: start: 20100501
  10. LERCANIDIPINE [Concomitant]
     Dosage: 10 MG,
     Dates: start: 20090901
  11. GLEEVEC [Suspect]
     Dosage: 800 MG DAILY
     Route: 048
     Dates: start: 20100601
  12. GLEEVEC [Suspect]
     Dosage: 400 MG, DAILY
     Dates: start: 20110601
  13. GLEEVEC [Suspect]
     Dosage: 400 MG DAILY
     Route: 048
     Dates: start: 20050301
  14. NOBITEN [Concomitant]
     Dosage: 2.5 MG, UNK
     Dates: start: 20111001
  15. ATACAND [Concomitant]
     Dosage: 16 MG, UNK
  16. PANTOPRAZOLE [Concomitant]
     Dosage: UNK

REACTIONS (5)
  - METASTASES TO LIVER [None]
  - PRESBYACUSIS [None]
  - METASTASES TO PERITONEUM [None]
  - DRUG TOLERANCE [None]
  - TINNITUS [None]
